FAERS Safety Report 10083241 (Version 2)
Quarter: 2014Q2

REPORT INFORMATION
  Report Type: Spontaneous
  Country: US (occurrence: US)
  Receive Date: 20140417
  Receipt Date: 20140515
  Transmission Date: 20141212
  Serious: No
  Sender: FDA-Public Use
  Company Number: US-009507513-1404USA009722

PATIENT
  Age: 30 Year
  Sex: Female
  Weight: 83.45 kg

DRUGS (1)
  1. NEXPLANON [Suspect]
     Indication: CONTRACEPTION
     Dosage: 68MG/ONE ROD EVERY THREE YEARS
     Route: 059
     Dates: start: 20130424

REACTIONS (2)
  - Discomfort [Not Recovered/Not Resolved]
  - Device breakage [Not Recovered/Not Resolved]
